FAERS Safety Report 14380237 (Version 16)
Quarter: 2018Q2

REPORT INFORMATION
  Report Type: Report from Study
  Country: DE (occurrence: DE)
  Receive Date: 20180112
  Receipt Date: 20180622
  Transmission Date: 20180711
  Serious: Yes (Hospitalization)
  Sender: FDA-Public Use
  Company Number: DE-PFIZER INC-2018008336

PATIENT
  Age: 84 Year
  Sex: Male
  Weight: 62.3 kg

DRUGS (22)
  1. DIFLUCAN [Concomitant]
     Active Substance: FLUCONAZOLE
     Indication: MUCOSAL INFLAMMATION
     Dosage: 100 MG, 1X/DAY
     Route: 046
     Dates: start: 20170130, end: 20170219
  2. SPASMEX [Concomitant]
     Dosage: 15 MG, DAILY
     Route: 048
  3. CLEXANE [Concomitant]
     Active Substance: ENOXAPARIN SODIUM
     Indication: THROMBOSIS PROPHYLAXIS
     Dosage: 40 MG, 1X/DAY
     Route: 058
     Dates: start: 20160512
  4. BRISERIN [Concomitant]
     Indication: HYPERTENSION
     Dosage: 0.1 MG, 1X/DAY
     Route: 048
  5. PEGYLATED LIPOSOMAL IRINOTECAN [Suspect]
     Active Substance: IRINOTECAN HYDROCHLORIDE
     Dosage: 35 MG, UNK
     Route: 042
     Dates: start: 20160512
  6. AVASTIN [Suspect]
     Active Substance: BEVACIZUMAB
     Dosage: 290 MG, EVERY 2 WEEKS
     Route: 042
     Dates: start: 20170119
  7. FLUOROURACIL. [Suspect]
     Active Substance: FLUOROURACIL
     Indication: COLORECTAL CANCER
     Dosage: 490-700 MG TWICE A WEEK
     Route: 040
     Dates: start: 20160512, end: 20170119
  8. FLUOROURACIL. [Suspect]
     Active Substance: FLUOROURACIL
     Dosage: 670 MG, UNK
     Route: 042
     Dates: start: 20160610
  9. CALCIUM FOLINATE [Suspect]
     Active Substance: LEUCOVORIN CALCIUM
     Dosage: 670 MG, EVERY 2 WEEKS
     Route: 041
     Dates: start: 20160610, end: 20170120
  10. PEGYLATED LIPOSOMAL IRINOTECAN [Suspect]
     Active Substance: IRINOTECAN HYDROCHLORIDE
     Dosage: 220 MG, EVERY 2 WEEKS, SOLUTION FOR INFUSION
     Route: 042
     Dates: start: 20170119
  11. PEGYLATED LIPOSOMAL IRINOTECAN [Suspect]
     Active Substance: IRINOTECAN HYDROCHLORIDE
     Indication: COLORECTAL CANCER
     Dosage: 315 MG, EVERY 2 WEEKS, SOLUTION FOR INFUSION
     Route: 042
     Dates: start: 20160512, end: 2016
  12. PEGYLATED LIPOSOMAL IRINOTECAN [Suspect]
     Active Substance: IRINOTECAN HYDROCHLORIDE
     Dosage: 300 MG, EVERY 2 WEEKS, SOLUTION FOR INFUSION
     Route: 042
     Dates: start: 20160610
  13. PEGYLATED LIPOSOMAL IRINOTECAN [Suspect]
     Active Substance: IRINOTECAN HYDROCHLORIDE
     Dosage: 225 MG, EVERY 2 WEEKS, SOLUTION FOR INFUSION
     Route: 042
     Dates: start: 20160628
  14. FLUOROURACIL. [Suspect]
     Active Substance: FLUOROURACIL
     Dosage: 4200-2990 MG, TWICE A WEEK
     Route: 041
     Dates: start: 20160512, end: 20170120
  15. AVASTIN [Suspect]
     Active Substance: BEVACIZUMAB
     Indication: COLORECTAL CANCER
     Dosage: 325 MG, EVERY 2 WEEKS
     Route: 042
     Dates: start: 20160512
  16. DEXAMETHASONE. [Suspect]
     Active Substance: DEXAMETHASONE
     Indication: DECREASED APPETITE
     Dosage: 4 MG, 1X/DAY
     Route: 046
     Dates: start: 20161215
  17. FLUOROURACIL. [Suspect]
     Active Substance: FLUOROURACIL
     Dosage: 4050 MG, UNK
     Route: 041
     Dates: start: 20160610, end: 20160611
  18. CALCIUM FOLINATE [Suspect]
     Active Substance: LEUCOVORIN CALCIUM
     Indication: COLORECTAL CANCER
     Dosage: 490-700 MG, TWICE A WEEK
     Route: 042
     Dates: start: 20160512, end: 20170119
  19. AVASTIN [Suspect]
     Active Substance: BEVACIZUMAB
     Dosage: 300 MG, EVERY 2 WEEKS
     Route: 042
     Dates: start: 20160610
  20. PREDNISOLONE. [Concomitant]
     Active Substance: PREDNISOLONE
     Indication: MUCOSAL INFLAMMATION
     Dosage: 50 MG, 1X/DAY
     Route: 042
     Dates: start: 20170130, end: 20170202
  21. SPASMEX [Concomitant]
     Dosage: 30 MG, 1X/DAY
     Route: 048
  22. PREDNISOLONE. [Concomitant]
     Active Substance: PREDNISOLONE
     Dosage: 25 MG, 1X/DAY
     Route: 042
     Dates: start: 20170203, end: 20170210

REACTIONS (6)
  - Mucosal inflammation [Recovered/Resolved]
  - Fatigue [Not Recovered/Not Resolved]
  - Condition aggravated [Not Recovered/Not Resolved]
  - Mucosal inflammation [Recovered/Resolved]
  - Decreased appetite [Not Recovered/Not Resolved]
  - Oral pain [Recovered/Resolved]

NARRATIVE: CASE EVENT DATE: 20160617
